FAERS Safety Report 7907671-3 (Version None)
Quarter: 2011Q4

REPORT INFORMATION
  Report Type: 
  Country: None (occurrence: None)
  Receive Date: 20111109
  Receipt Date: 20111109
  Transmission Date: 20120403
  Serious: Yes (Other)
  Sender: FDA-Public Use
  Company Number: None

PATIENT
  Age: 73 Year
  Sex: Female
  Weight: 77.1115 kg

DRUGS (1)
  1. ALLI (ORLISTAT) [Suspect]
     Indication: WEIGHT CONTROL
     Dosage: 1 CAP, EACH MEAL
     Dates: start: 20090301, end: 20101101

REACTIONS (9)
  - GASTROINTESTINAL ULCER [None]
  - RECTAL HAEMORRHAGE [None]
  - MALAISE [None]
  - NAUSEA [None]
  - VOMITING [None]
  - CHOLELITHIASIS [None]
  - HAEMORRHOIDS [None]
  - DIARRHOEA [None]
  - GASTROINTESTINAL DISORDER [None]
